FAERS Safety Report 6163759-1 (Version None)
Quarter: 2009Q2

REPORT INFORMATION
  Report Type: 
  Country: None (occurrence: None)
  Receive Date: 20090420
  Receipt Date: 20090420
  Transmission Date: 20091009
  Serious: Yes (Death)
  Sender: FDA-Public Use
  Company Number: None

PATIENT
  Sex: Male

DRUGS (9)
  1. REVLIMID [Suspect]
     Indication: MULTIPLE MYELOMA
     Dosage: 10MG  DAILY 21D/28D ORAL
     Route: 048
     Dates: start: 20070201, end: 20070801
  2. FUROSEMIDE [Concomitant]
  3. HYDROMORPHONE HCL [Concomitant]
  4. PREDNISONE [Concomitant]
  5. METHOCARBAMOL [Concomitant]
  6. LACTULOSE [Concomitant]
  7. MEGESTROL ACETATE [Concomitant]
  8. METOCLOPRAMIDE [Concomitant]
  9. GABAPENTIN [Concomitant]

REACTIONS (6)
  - DRUG INTOLERANCE [None]
  - GENERAL PHYSICAL HEALTH DETERIORATION [None]
  - NEUTROPENIA [None]
  - PAIN [None]
  - RENAL FAILURE ACUTE [None]
  - THROMBOCYTOPENIA [None]
